FAERS Safety Report 19626834 (Version 1)
Quarter: 2021Q3

REPORT INFORMATION
  Report Type: Spontaneous
  Country: GB (occurrence: GB)
  Receive Date: 20210729
  Receipt Date: 20210729
  Transmission Date: 20211014
  Serious: Yes (Other)
  Sender: FDA-Public Use
  Company Number: GB-TEVA-2021-GB-1936040

PATIENT
  Age: 60 Year
  Sex: Male

DRUGS (3)
  1. CARBAMAZEPINE. [Concomitant]
     Active Substance: CARBAMAZEPINE
     Dosage: 3 DOSAGE FORMS DAILY;
     Dates: start: 20141016
  2. FAMOTIDINE. [Concomitant]
     Active Substance: FAMOTIDINE
     Dosage: 1 DOSAGE FORMS DAILY;
     Dates: start: 20210716
  3. LANSOPRAZOLE. [Suspect]
     Active Substance: LANSOPRAZOLE
     Dosage: 15 MILLIGRAM DAILY;
     Route: 065
     Dates: start: 20210709

REACTIONS (2)
  - Pain [Unknown]
  - Chromaturia [Recovering/Resolving]

NARRATIVE: CASE EVENT DATE: 20210716
